FAERS Safety Report 21722861 (Version 5)
Quarter: 2024Q1

REPORT INFORMATION
  Report Type: Report from Study
  Country: US (occurrence: US)
  Receive Date: 20221213
  Receipt Date: 20240228
  Transmission Date: 20240410
  Serious: Yes (Other)
  Sender: FDA-Public Use
  Company Number: US-UCBSA-2022017505

PATIENT
  Age: 73 Year
  Sex: Female
  Weight: 125 kg

DRUGS (3)
  1. ROTIGOTINE [Suspect]
     Active Substance: ROTIGOTINE
     Indication: Parkinson^s disease
     Dosage: 1 MILLIGRAM, ONCE DAILY (QD)
     Route: 062
  2. ROTIGOTINE [Suspect]
     Active Substance: ROTIGOTINE
     Dosage: 4 MILLIGRAM, ONCE DAILY (QD)
  3. ROTIGOTINE [Suspect]
     Active Substance: ROTIGOTINE
     Dosage: 3 MILLIGRAM, ONCE DAILY (QD) PATCH
     Route: 062

REACTIONS (10)
  - Eye operation [Not Recovered/Not Resolved]
  - Cataract [Not Recovered/Not Resolved]
  - Spinal operation [Recovered/Resolved]
  - Malaise [Unknown]
  - Rash [Recovered/Resolved]
  - Treatment noncompliance [Unknown]
  - Product availability issue [Unknown]
  - Product adhesion issue [Unknown]
  - Underdose [Unknown]
  - Product use issue [Unknown]

NARRATIVE: CASE EVENT DATE: 20220321
